FAERS Safety Report 6412479-4 (Version None)
Quarter: 2009Q4

REPORT INFORMATION
  Report Type: 
  Country: None (occurrence: None)
  Receive Date: 20091023
  Receipt Date: 20091013
  Transmission Date: 20100525
  Serious: Yes (Death, Hospitalization)
  Sender: FDA-Public Use
  Company Number: US-JNJFOC-20090906690

PATIENT
  Sex: Female
  Weight: 96.16 kg

DRUGS (4)
  1. REMICADE [Suspect]
     Indication: RHEUMATOID ARTHRITIS
     Route: 042
  2. INSULIN [Concomitant]
     Indication: TYPE 2 DIABETES MELLITUS
  3. PREDNISONE [Concomitant]
  4. IMURAN [Concomitant]

REACTIONS (3)
  - ORAL CANDIDIASIS [None]
  - PNEUMONIA [None]
  - PULMONARY FIBROSIS [None]
